FAERS Safety Report 7204421-3 (Version None)
Quarter: 2010Q4

REPORT INFORMATION
  Report Type: 
  Country: None (occurrence: None)
  Receive Date: 20101230
  Receipt Date: 20101220
  Transmission Date: 20110411
  Serious: Yes (Life-Threatening, Hospitalization)
  Sender: FDA-Public Use
  Company Number: DE-JNJFOC-20101206954

PATIENT
  Sex: Female
  Weight: 84.2 kg

DRUGS (4)
  1. REMICADE [Suspect]
     Indication: COLITIS ULCERATIVE
     Route: 042
  2. TORASEMID [Concomitant]
     Indication: CARDIAC FAILURE
     Route: 048
  3. VOTUM [Concomitant]
     Indication: CARDIAC FAILURE
     Dosage: 20/12.5 MG
     Route: 048
  4. ALLOPURINOL [Concomitant]
     Route: 048

REACTIONS (1)
  - EMBOLISM ARTERIAL [None]
